FAERS Safety Report 8006545-X (Version None)
Quarter: 2011Q4

REPORT INFORMATION
  Report Type: 
  Country: None (occurrence: None)
  Receive Date: 20111227
  Receipt Date: 20111215
  Transmission Date: 20120403
  Serious: Yes (Hospitalization)
  Sender: FDA-Public Use
  Company Number: FR-AMGEN-FRASP2011064313

PATIENT
  Age: 33 Year
  Sex: Female

DRUGS (2)
  1. ENBREL [Suspect]
     Indication: PSORIASIS
     Dosage: 50 MG, 1 DOSAGE FORM WEEKLY
     Route: 058
     Dates: start: 20110201
  2. CEFPODOXIME PROXETIL [Concomitant]
     Indication: PHARYNGITIS
     Dosage: UNK
     Dates: start: 20110801

REACTIONS (1)
  - DERMATITIS PSORIASIFORM [None]
